FAERS Safety Report 9302907 (Version 2)
Quarter: 2013Q3

REPORT INFORMATION
  Report Type: Spontaneous
  Country: BR (occurrence: BR)
  Receive Date: 20130522
  Receipt Date: 20130731
  Transmission Date: 20140515
  Serious: Yes (Hospitalization, Other)
  Sender: FDA-Public Use
  Company Number: BR-ELI_LILLY_AND_COMPANY-BR201305005643

PATIENT
  Age: 62 Year
  Sex: Female
  Weight: 80 kg

DRUGS (7)
  1. EFFIENT [Suspect]
     Dosage: 10 MG, QD
     Route: 048
     Dates: start: 201212, end: 20130503
  2. SIMVASTATIN [Concomitant]
     Dosage: UNKNOWN
     Route: 065
  3. CARVEDILOL [Concomitant]
     Dosage: UNKNOWN
     Route: 065
  4. LOSARTAN [Concomitant]
     Dosage: UNKNOWN
     Route: 065
  5. RISEDRONATE SODIUM [Concomitant]
     Dosage: UNKNOWN
     Route: 065
  6. LEVOTHYROXINE SODIUM [Concomitant]
     Dosage: UNKNOWN
     Route: 065
  7. ACETYLSALICYLIC ACID [Concomitant]
     Dosage: UNKNOWN
     Route: 065

REACTIONS (4)
  - Sensation of blood flow [Recovered/Resolved]
  - Intestinal haemorrhage [Recovered/Resolved]
  - Chest pain [Recovered/Resolved]
  - Dizziness [Recovered/Resolved]
